FAERS Safety Report 7261694-9 (Version None)
Quarter: 2011Q1

REPORT INFORMATION
  Report Type: 
  Country: None (occurrence: None)
  Receive Date: 20110120
  Receipt Date: 20110107
  Transmission Date: 20110831
  Serious: Yes (Other)
  Sender: FDA-Public Use
  Company Number: ACO_21360_2011

PATIENT
  Age: 70 Year
  Sex: Male
  Weight: 88.4 kg

DRUGS (9)
  1. LIPITOR [Concomitant]
  2. ASPIRIN [Concomitant]
  3. PLAVIX /01330701/ (CLOPIDOGREL) [Concomitant]
  4. COPAXONE [Concomitant]
  5. AMPYRA [Suspect]
     Indication: GAIT DISTURBANCE
     Dosage: 10 MG, BID, ORAL
     Route: 048
     Dates: start: 20100301
  6. SYNTHROID [Concomitant]
  7. COZAAR [Concomitant]
  8. INVESTIGATIONAL DRUG (TRA2TW0TIMI50) [Concomitant]
  9. BUSTOLIC (NEBIVOLOL HYDROCHLORIDE) [Concomitant]

REACTIONS (1)
  - NEPHROTIC SYNDROME [None]
